FAERS Safety Report 15551208 (Version 1)
Quarter: 2018Q4

REPORT INFORMATION
  Report Type: Spontaneous
  Country: US (occurrence: US)
  Receive Date: 20181025
  Receipt Date: 20181025
  Transmission Date: 20190205
  Serious: No
  Sender: FDA-Public Use
  Company Number: None

PATIENT
  Age: 37 Year
  Sex: Female
  Weight: 60.75 kg

DRUGS (1)
  1. INTRAROSA [Suspect]
     Active Substance: PRASTERONE
     Indication: VULVOVAGINAL PAIN
     Route: 067
     Dates: start: 20180830, end: 20180930

REACTIONS (3)
  - Pain [None]
  - Drug ineffective [None]
  - Alopecia [None]

NARRATIVE: CASE EVENT DATE: 20180830
